FAERS Safety Report 8491852-7 (Version None)
Quarter: 2012Q3

REPORT INFORMATION
  Report Type: 
  Country: None (occurrence: None)
  Receive Date: 20120706
  Receipt Date: 20110726
  Transmission Date: 20120928
  Serious: No
  Sender: FDA-Public Use
  Company Number: US-GLAXOSMITHKLINE-A0938368A

PATIENT
  Age: 71 Year
  Sex: Female

DRUGS (4)
  1. SYNTHROID [Concomitant]
  2. ALPRAZOLAM [Concomitant]
  3. FLOVENT [Suspect]
     Indication: ASTHMA
     Route: 055
     Dates: start: 20100101
  4. ALBUTEROL [Concomitant]

REACTIONS (4)
  - AGITATION [None]
  - PAIN IN JAW [None]
  - DRY MOUTH [None]
  - SINUS POLYP [None]
